FAERS Safety Report 8255730-0 (Version None)
Quarter: 2012Q2

REPORT INFORMATION
  Report Type: 
  Country: None (occurrence: None)
  Receive Date: 20120403
  Receipt Date: 20120329
  Transmission Date: 20120825
  Serious: Yes (Other)
  Sender: FDA-Public Use
  Company Number: PHEH2012US006972

PATIENT
  Sex: Female

DRUGS (3)
  1. MARIJUANA [Suspect]
     Dosage: UNK UKN, UNK
  2. GILENYA [Suspect]
     Indication: RELAPSING-REMITTING MULTIPLE SCLEROSIS
     Dosage: UNK UKN, UNK
     Dates: start: 20110301
  3. COCAINE [Suspect]
     Dosage: UNK UKN, UNK

REACTIONS (8)
  - AMNESIA [None]
  - DYSPHEMIA [None]
  - BALANCE DISORDER [None]
  - MULTIPLE SCLEROSIS RELAPSE [None]
  - FATIGUE [None]
  - MULTIPLE DRUG OVERDOSE [None]
  - PANIC ATTACK [None]
  - COGNITIVE DISORDER [None]
